FAERS Safety Report 20393424 (Version 3)
Quarter: 2022Q1

REPORT INFORMATION
  Report Type: Spontaneous
  Country: MX (occurrence: MX)
  Receive Date: 20220128
  Receipt Date: 20220211
  Transmission Date: 20220423
  Serious: Yes (Death, Hospitalization, Other)
  Sender: FDA-Public Use
  Company Number: MX-BoehringerIngelheim-2022-BI-150623

PATIENT
  Sex: Male

DRUGS (1)
  1. DABIGATRAN ETEXILATE MESYLATE [Suspect]
     Active Substance: DABIGATRAN ETEXILATE MESYLATE
     Indication: Deep vein thrombosis

REACTIONS (2)
  - Death [Fatal]
  - Drug ineffective [Recovered/Resolved]

NARRATIVE: CASE EVENT DATE: 20210222
